FAERS Safety Report 17460782 (Version 1)
Quarter: 2020Q1

REPORT INFORMATION
  Report Type: Spontaneous
  Country: DE (occurrence: DE)
  Receive Date: 20200226
  Receipt Date: 20200226
  Transmission Date: 20200409
  Serious: Yes (Other)
  Sender: FDA-Public Use
  Company Number: DE-UCBSA-2019054841

PATIENT
  Age: 56 Year
  Sex: Female

DRUGS (2)
  1. KEPPRA [Suspect]
     Active Substance: LEVETIRACETAM
     Indication: PRODUCT USED FOR UNKNOWN INDICATION
     Dosage: 3750 MG DAILY
     Dates: start: 201109
  2. KEPPRA [Suspect]
     Active Substance: LEVETIRACETAM
     Dosage: INCREASED DOSE

REACTIONS (10)
  - Aggression [Unknown]
  - Overdose [Unknown]
  - Off label use [Unknown]
  - Social problem [Unknown]
  - Lethargy [Unknown]
  - Personality change [Unknown]
  - Emotional disorder [Unknown]
  - Listless [Unknown]
  - Haemangioma [Unknown]
  - Illusion [Unknown]

NARRATIVE: CASE EVENT DATE: 201109
